FAERS Safety Report 19774551 (Version 1)
Quarter: 2021Q3

REPORT INFORMATION
  Report Type: Spontaneous
  Country: US (occurrence: US)
  Receive Date: 20210901
  Receipt Date: 20210901
  Transmission Date: 20211014
  Serious: Yes (Hospitalization)
  Sender: FDA-Public Use
  Company Number: US-THERAPEUTICSMD-2021TMD01934

PATIENT
  Age: 33 Year
  Sex: Female
  Weight: 85.71 kg

DRUGS (2)
  1. ANNOVERA [Suspect]
     Active Substance: ETHINYL ESTRADIOL\SEGESTERONE ACETATE
     Indication: HEAVY MENSTRUAL BLEEDING
  2. ANNOVERA [Suspect]
     Active Substance: ETHINYL ESTRADIOL\SEGESTERONE ACETATE
     Indication: MENSTRUATION IRREGULAR
     Dosage: 1 RING; INSERT X 3 MONTHS THEN REMOVE X 1 MONTH
     Route: 067
     Dates: start: 20210329

REACTIONS (2)
  - Off label use [Unknown]
  - Pulmonary embolism [Unknown]

NARRATIVE: CASE EVENT DATE: 20210329
